FAERS Safety Report 13993640 (Version 6)
Quarter: 2018Q1

REPORT INFORMATION
  Report Type: Report from Study
  Country: US (occurrence: US)
  Receive Date: 20170920
  Receipt Date: 20180213
  Transmission Date: 20180508
  Serious: Yes (Hospitalization)
  Sender: FDA-Public Use
  Company Number: US-PFIZER INC-2017397800

PATIENT
  Age: 74 Year
  Sex: Female
  Weight: 65 kg

DRUGS (13)
  1. ABT-165 [Suspect]
     Active Substance: INVESTIGATIONAL PRODUCT
     Indication: NEOPLASM
     Dosage: 2.5 MG/KG, CYCLIC (DAY 1 AND DAY 15 OF 28-DAY CYCLE)
     Route: 042
     Dates: start: 20170531, end: 20170614
  2. IRINOTECAN HCL [Suspect]
     Active Substance: IRINOTECAN HYDROCHLORIDE
     Indication: NEOPLASM
     Dosage: 180 MG/M2, CYCLIC (DAY 1 AND  DAY 15 OF EACH 28-DAY CYCLE)
     Route: 042
     Dates: start: 20170531
  3. ULTRAM [Concomitant]
     Active Substance: TRAMADOL HYDROCHLORIDE
     Indication: MUSCULOSKELETAL CHEST PAIN
  4. GRANISETRON [Concomitant]
     Active Substance: GRANISETRON
     Indication: NAUSEA
     Dosage: 1 MG, SINGLE
     Route: 042
     Dates: start: 20170602, end: 20170602
  5. FAMOTIDINE. [Concomitant]
     Active Substance: FAMOTIDINE
     Indication: GASTROOESOPHAGEAL REFLUX DISEASE
     Dosage: 20 MG, SINGLE
     Route: 042
     Dates: start: 20170602, end: 20170602
  6. ABT-165 [Suspect]
     Active Substance: INVESTIGATIONAL PRODUCT
     Dosage: 1.25 MG/KG, CYCLIC  (DAY 1 AND DAY 15 OF 28-DAY CYCLE)
     Route: 042
     Dates: start: 20170705
  7. FLUOROURACIL. [Suspect]
     Active Substance: FLUOROURACIL
     Indication: NEOPLASM
     Dosage: 400 MG/M2, CYCLIC (DAY 1 AND DAY 15 OF 28-DAY)
     Route: 041
     Dates: start: 20170531
  8. MIRALAX [Concomitant]
     Active Substance: POLYETHYLENE GLYCOL 3350
     Indication: CONSTIPATION
     Dosage: 17 G, AS NEEDED
     Route: 048
     Dates: start: 20170512
  9. NORMAL SALINE [Concomitant]
     Active Substance: SODIUM CHLORIDE
     Indication: DEHYDRATION
     Dosage: 1 L, SINGLE
     Route: 042
     Dates: start: 20170602, end: 20170602
  10. CALCIUM FOLINATE [Suspect]
     Active Substance: LEUCOVORIN CALCIUM
     Indication: NEOPLASM
     Dosage: 400 MG/M2, CYCLIC (DAY 1 AND DAY 15 OF 28-DAY CYCLE)
     Route: 042
     Dates: start: 20170531
  11. MEGACE [Concomitant]
     Active Substance: MEGESTROL ACETATE
     Indication: INCREASED APPETITE
     Dosage: 625 MG, 1X/DAY
     Route: 048
     Dates: start: 20170515
  12. ULTRAM [Concomitant]
     Active Substance: TRAMADOL HYDROCHLORIDE
     Indication: SLEEP DISORDER
     Dosage: 50 MG, AS NEEDED
     Route: 048
     Dates: start: 20170512
  13. LOSARTAN POTASSIUM. [Concomitant]
     Active Substance: LOSARTAN POTASSIUM
     Indication: HYPERTENSION
     Dosage: 50 MG, 1X/DAY
     Route: 048
     Dates: start: 19950501

REACTIONS (1)
  - Non-cardiac chest pain [Recovered/Resolved]

NARRATIVE: CASE EVENT DATE: 20170810
